FAERS Safety Report 10110556 (Version 1)
Quarter: 2014Q2

REPORT INFORMATION
  Report Type: Spontaneous
  Country: FR (occurrence: FR)
  Receive Date: 20140425
  Receipt Date: 20140425
  Transmission Date: 20141212
  Serious: Yes (Other)
  Sender: FDA-Public Use
  Company Number: FR-009507513-1404FRA009993

PATIENT
  Age: 27 Year
  Sex: Female

DRUGS (1)
  1. INVANZ [Suspect]
     Indication: PYELONEPHRITIS
     Dosage: UNK
     Route: 058
     Dates: start: 20140415

REACTIONS (3)
  - Skin necrosis [Unknown]
  - Incorrect route of drug administration [Unknown]
  - Off label use [Unknown]
